FAERS Safety Report 9171269 (Version 7)
Quarter: 2013Q2

REPORT INFORMATION
  Report Type: Report from Study
  Country: CA (occurrence: CA)
  Receive Date: 20130319
  Receipt Date: 20130524
  Transmission Date: 20140414
  Serious: Yes (Other)
  Sender: FDA-Public Use
  Company Number: CA-ROCHE-1203424

PATIENT
  Age: 55 Year
  Sex: Female
  Weight: 52 kg

DRUGS (8)
  1. AVASTIN [Suspect]
     Indication: COLON CANCER METASTATIC
     Route: 042
     Dates: start: 20120220, end: 20130509
  2. AVASTIN [Suspect]
     Route: 042
     Dates: start: 20130326
  3. FOLINIC ACID [Suspect]
     Indication: COLON CANCER METASTATIC
     Route: 042
     Dates: start: 20120220, end: 20130228
  4. FOLINIC ACID [Suspect]
     Route: 042
     Dates: start: 20130327, end: 201305
  5. 5-FLUOROURACIL [Suspect]
     Indication: COLON CANCER METASTATIC
     Route: 042
     Dates: start: 20120220, end: 20130228
  6. 5-FLUOROURACIL [Suspect]
     Route: 042
     Dates: start: 20130327, end: 201305
  7. IRINOTECAN [Suspect]
     Indication: COLON CANCER METASTATIC
     Route: 042
     Dates: start: 20120220, end: 20130228
  8. IRINOTECAN [Suspect]
     Route: 042
     Dates: start: 20130327, end: 201305

REACTIONS (14)
  - White blood cell count decreased [Unknown]
  - Metastases to liver [Unknown]
  - Metastases to lung [Unknown]
  - Drug ineffective [Unknown]
  - Blood pressure decreased [Recovering/Resolving]
  - Red cell distribution width increased [Unknown]
  - Blood alkaline phosphatase increased [Unknown]
  - Alanine aminotransferase increased [Unknown]
  - Aspartate aminotransferase increased [Unknown]
  - Blood chloride increased [Unknown]
  - Platelet count decreased [Unknown]
  - Neutrophil count decreased [Unknown]
  - Weight increased [Recovering/Resolving]
  - No therapeutic response [Unknown]
